FAERS Safety Report 4308809-X (Version None)
Quarter: 2004Q1

REPORT INFORMATION
  Report Type: 
  Country: None (occurrence: None)
  Receive Date: 20040301
  Receipt Date: 20040301
  Transmission Date: 20041129
  Serious: Yes (Hospitalization)
  Sender: FDA-Public Use
  Company Number: None

PATIENT
  Age: 56 Year
  Sex: Female
  Weight: 62.1 kg

DRUGS (9)
  1. METHOTREXATE [Suspect]
     Indication: ARTHRITIS
     Dosage: 17.5 G TUES
     Dates: start: 19870101
  2. PREDNISONE [Concomitant]
  3. NEXIUM [Concomitant]
  4. REGLAN [Concomitant]
  5. SULFASALAZINE [Concomitant]
  6. FOLIC ACID [Concomitant]
  7. REMICADE [Concomitant]
  8. FLEXERIL [Concomitant]
  9. VIOXX [Concomitant]

REACTIONS (8)
  - COUGH [None]
  - DYSPNOEA AT REST [None]
  - DYSPNOEA EXERTIONAL [None]
  - LUNG INFILTRATION [None]
  - MALAISE [None]
  - ORTHOPNOEA [None]
  - PNEUMONITIS [None]
  - WHEEZING [None]
